FAERS Safety Report 8073881-0 (Version None)
Quarter: 2011Q4

REPORT INFORMATION
  Report Type: 
  Country: None (occurrence: None)
  Receive Date: 20111221
  Receipt Date: 20110316
  Transmission Date: 20120403
  Serious: Yes (Hospitalization)
  Sender: FDA-Public Use
  Company Number: PHHY2011US19088

PATIENT
  Age: 25 Year
  Sex: Male
  Weight: 77.3 kg

DRUGS (5)
  1. FOLIC ACID [Concomitant]
  2. VITAMIN D [Concomitant]
  3. HYDROXYUREA [Concomitant]
  4. EXJADE [Suspect]
     Indication: IRON METABOLISM DISORDER
     Dosage: 1500 MG, DAILY, ORAL
     Route: 048
     Dates: start: 20100713
  5. VITAMIN B12 [Concomitant]

REACTIONS (2)
  - SICKLE CELL ANAEMIA WITH CRISIS [None]
  - INFLUENZA [None]
